FAERS Safety Report 23327368 (Version 20)
Quarter: 2025Q4

REPORT INFORMATION
  Report Type: Report from Study
  Country: US (occurrence: US)
  Receive Date: 20231221
  Receipt Date: 20251120
  Transmission Date: 20260117
  Serious: Yes (Other)
  Sender: TAKEDA
  Company Number: US-TAKEDA-2023TUS043375

PATIENT
  Sex: Female
  Weight: 76 kg

DRUGS (19)
  1. HUMAN IMMUNOGLOBULIN G [Suspect]
     Active Substance: HUMAN IMMUNOGLOBULIN G
     Indication: Immune system disorder
     Dosage: 20 GRAM, Q2WEEKS
     Dates: start: 20230414
  2. HUMAN IMMUNOGLOBULIN G [Suspect]
     Active Substance: HUMAN IMMUNOGLOBULIN G
     Indication: Hypergammaglobulinaemia
     Dosage: 20 GRAM, Q2WEEKS
  3. HIZENTRA [Suspect]
     Active Substance: HUMAN IMMUNOGLOBULIN G
     Indication: Product used for unknown indication
     Dosage: UNK
  4. ACETAMINOPHEN [Concomitant]
     Active Substance: ACETAMINOPHEN
     Dosage: UNK
  5. EPINEPHRINE [Concomitant]
     Active Substance: EPINEPHRINE
     Dosage: UNK
  6. ATORVASTATIN CALCIUM [Concomitant]
     Active Substance: ATORVASTATIN CALCIUM
     Dosage: UNK
  7. HYDROCORTISONE [Concomitant]
     Active Substance: HYDROCORTISONE
     Dosage: UNK
  8. VITAMIN D3 [Concomitant]
     Active Substance: CHOLECALCIFEROL
     Dosage: UNK
  9. THERATEARS [Concomitant]
     Active Substance: CARBOXYMETHYLCELLULOSE SODIUM
     Dosage: UNK
  10. LIDOCAINE [Concomitant]
     Active Substance: LIDOCAINE
     Dosage: UNK
  11. ARMOUR THYROID [Concomitant]
     Active Substance: THYROID, PORCINE
     Dosage: UNK
  12. FLUDROCORTISONE ACETATE [Concomitant]
     Active Substance: FLUDROCORTISONE ACETATE
     Dosage: UNK
  13. LATANOPROST [Concomitant]
     Active Substance: LATANOPROST
     Dosage: UNK
  14. CLOBETASOL [Concomitant]
     Active Substance: CLOBETASOL
     Dosage: UNK
  15. DIPHENHYDRAMINE HYDROCHLORIDE [Concomitant]
     Active Substance: DIPHENHYDRAMINE HYDROCHLORIDE
     Dosage: UNK
  16. POTASSIUM CHLORIDE [Concomitant]
     Active Substance: POTASSIUM CHLORIDE
     Dosage: UNK
  17. ESTRADIOL [Concomitant]
     Active Substance: ESTRADIOL
     Dosage: UNK
  18. RESTASIS [Concomitant]
     Active Substance: CYCLOSPORINE
     Dosage: UNK
  19. Emolliens [Concomitant]

REACTIONS (46)
  - Mast cell activation syndrome [Unknown]
  - Deafness unilateral [Unknown]
  - Pneumonia [Unknown]
  - Illness [Unknown]
  - Skin laceration [Unknown]
  - Sensitive skin [Unknown]
  - Ear infection [Unknown]
  - Weight increased [Unknown]
  - Blood pressure decreased [Unknown]
  - Multiple allergies [Unknown]
  - Dermatitis contact [Unknown]
  - Drug hypersensitivity [Unknown]
  - Ear pain [Unknown]
  - Syringe issue [Unknown]
  - Bronchitis [Unknown]
  - Incorrect dose administered [Unknown]
  - Orthostatic hypotension [Unknown]
  - Product dose omission issue [Unknown]
  - Breast mass [Unknown]
  - Ear disorder [Unknown]
  - Blood sodium increased [Unknown]
  - Peripheral swelling [Unknown]
  - Infusion site discharge [Unknown]
  - Fall [Unknown]
  - Inappropriate schedule of product administration [Unknown]
  - Infusion site haemorrhage [Unknown]
  - Feeling cold [Unknown]
  - Rash pruritic [Unknown]
  - Blood pressure fluctuation [Unknown]
  - Influenza [Recovering/Resolving]
  - Muscular weakness [Unknown]
  - Vertigo [Unknown]
  - Infusion site bruising [Unknown]
  - Asthenia [Unknown]
  - Infusion site pruritus [Unknown]
  - Malaise [Unknown]
  - Infusion site pain [Unknown]
  - Pruritus [Unknown]
  - Headache [Unknown]
  - Gingival disorder [Unknown]
  - Needle issue [Unknown]
  - Product administration error [Unknown]
  - Insomnia [Unknown]
  - Blood pressure increased [Unknown]
  - Glucose tolerance impaired [Unknown]
  - Haematocrit increased [Unknown]
